FAERS Safety Report 20431196 (Version 1)
Quarter: 2022Q1

REPORT INFORMATION
  Report Type: Spontaneous
  Country: CN (occurrence: CN)
  Receive Date: 20220204
  Receipt Date: 20220204
  Transmission Date: 20220423
  Serious: Yes (Other)
  Sender: FDA-Public Use
  Company Number: CN-009507513-2201CHN008465

PATIENT
  Age: 77 Year
  Sex: Female
  Weight: 60 kg

DRUGS (1)
  1. CILASTATIN SODIUM\IMIPENEM [Suspect]
     Active Substance: CILASTATIN SODIUM\IMIPENEM
     Indication: Anti-infective therapy
     Dosage: 0.5 MG (ALSO PROVIDED AS 0.5 G, INCONSISTENCY), 3 TIMES 1 DAY (TID)
     Route: 041
     Dates: start: 20220119, end: 20220125

REACTIONS (4)
  - Diarrhoea [Recovered/Resolved]
  - Dysbiosis [Recovered/Resolved]
  - Underdose [Unknown]
  - Circumstance or information capable of leading to medication error [Unknown]

NARRATIVE: CASE EVENT DATE: 20220119
